FAERS Safety Report 16857941 (Version 3)
Quarter: 2021Q1

REPORT INFORMATION
  Report Type: Spontaneous
  Country: US (occurrence: US)
  Receive Date: 20190926
  Receipt Date: 20210108
  Transmission Date: 20210419
  Serious: No
  Sender: FDA-Public Use
  Company Number: US-SUNOVION-2019SUN003899

PATIENT
  Sex: Female

DRUGS (2)
  1. SEROQUEL [Suspect]
     Active Substance: QUETIAPINE FUMARATE
     Dosage: UNK
     Route: 065
  2. LATUDA [Suspect]
     Active Substance: LURASIDONE HYDROCHLORIDE
     Dosage: 80 MG, QD
     Route: 048

REACTIONS (6)
  - Insomnia [Unknown]
  - Maternal exposure during pregnancy [Unknown]
  - Myalgia [Unknown]
  - Off label use [Unknown]
  - Somnolence [Unknown]
  - Abdominal pain upper [Not Recovered/Not Resolved]
